FAERS Safety Report 8536533-6 (Version None)
Quarter: 2012Q3

REPORT INFORMATION
  Report Type: 
  Country: None (occurrence: None)
  Receive Date: 20120725
  Receipt Date: 20120717
  Transmission Date: 20120928
  Serious: Yes (Hospitalization)
  Sender: FDA-Public Use
  Company Number: DE-ROCHE-1090471

PATIENT
  Age: 60 Year
  Sex: Female

DRUGS (3)
  1. XELODA [Suspect]
     Indication: BREAST CANCER
     Dates: start: 20120101
  2. METFORMIN HYDROCHLORIDE [Concomitant]
     Indication: TYPE 2 DIABETES MELLITUS
  3. HERCEPTIN [Suspect]
     Indication: BREAST CANCER
     Dates: start: 20120101

REACTIONS (4)
  - MUCOSAL INFLAMMATION [None]
  - DEHYDRATION [None]
  - RENAL FAILURE [None]
  - SEPSIS [None]
